FAERS Safety Report 9814282 (Version 2)
Quarter: 2014Q1

REPORT INFORMATION
  Report Type: Spontaneous
  Country: US (occurrence: US)
  Receive Date: 20140113
  Receipt Date: 20140113
  Transmission Date: 20141002
  Serious: Yes (Other)
  Sender: FDA-Public Use
  Company Number: US-PURDUE-USA-2008-0035315

PATIENT
  Age: 23 Year
  Sex: Female

DRUGS (5)
  1. OXYCONTIN (NDA 22-272) [Suspect]
     Indication: DRUG ABUSE
     Dosage: UNK
     Route: 065
  2. MORPHINE SULFATE (SIMILAR TO NDA 19-516) [Suspect]
  3. HEROIN [Suspect]
     Indication: DRUG ABUSE
  4. COCAINE [Suspect]
     Indication: DRUG ABUSE
  5. MARIJUANA [Suspect]
     Indication: DRUG ABUSE

REACTIONS (4)
  - Road traffic accident [Unknown]
  - Substance abuse [Unknown]
  - Drug dependence [Unknown]
  - Euphoric mood [Unknown]
